FAERS Safety Report 7017642-X (Version None)
Quarter: 2010Q3

REPORT INFORMATION
  Report Type: 
  Country: None (occurrence: None)
  Receive Date: 20100928
  Receipt Date: 20100920
  Transmission Date: 20110219
  Serious: Yes (Other)
  Sender: FDA-Public Use
  Company Number: US-PFIZER INC-2010119886

PATIENT
  Sex: Male
  Weight: 81.633 kg

DRUGS (2)
  1. LIPITOR [Suspect]
     Indication: BLOOD CHOLESTEROL INCREASED
     Dosage: 40 MG, DAILY
     Route: 048
     Dates: start: 20020101
  2. ATENOLOL [Concomitant]
     Indication: HYPERTENSION
     Dosage: UNK

REACTIONS (8)
  - AMMONIA INCREASED [None]
  - ARTHRITIS [None]
  - ASTHMA [None]
  - CHRONIC OBSTRUCTIVE PULMONARY DISEASE [None]
  - ENCEPHALOPATHY [None]
  - HYPOAESTHESIA [None]
  - NERVE COMPRESSION [None]
  - OXYGEN SATURATION DECREASED [None]
